FAERS Safety Report 9225159 (Version 3)
Quarter: 2013Q2

REPORT INFORMATION
  Report Type: Spontaneous
  Country: BR (occurrence: None)
  Receive Date: 20130409
  Receipt Date: 20130514
  Transmission Date: 20140414
  Serious: Yes (Death, Hospitalization)
  Sender: FDA-Public Use
  Company Number: 2013-001008

PATIENT
  Age: 82 Year
  Sex: Female
  Weight: 52 kg

DRUGS (3)
  1. ACTONEL [Suspect]
     Indication: BONE DENSITY DECREASED
     Route: 048
     Dates: start: 2010, end: 2011
  2. LORAX   /00273201/ (LORAZEPAM) [Concomitant]
  3. OTHER THERAPEUTIC PRODUCTS [Concomitant]

REACTIONS (8)
  - Death [None]
  - Respiratory failure [None]
  - Pneumonia [None]
  - Gastrooesophageal reflux disease [None]
  - Fall [None]
  - Femur fracture [None]
  - Bedridden [None]
  - Abasia [None]
